APPROVED DRUG PRODUCT: BUTALBITAL, ACETAMINOPHEN AND CAFFEINE
Active Ingredient: ACETAMINOPHEN; BUTALBITAL; CAFFEINE
Strength: 325MG/15ML;50MG/15ML;40MG/15ML
Dosage Form/Route: SOLUTION;ORAL
Application: A040387 | Product #001
Applicant: GENUS LIFESCIENCES INC
Approved: Jan 31, 2003 | RLD: No | RS: Yes | Type: RX